FAERS Safety Report 25508549 (Version 3)
Quarter: 2025Q3

REPORT INFORMATION
  Report Type: Spontaneous
  Country: US (occurrence: US)
  Receive Date: 20250703
  Receipt Date: 20250717
  Transmission Date: 20251021
  Serious: No
  Sender: ABBVIE
  Company Number: US-ABBVIE-6348708

PATIENT
  Sex: Female

DRUGS (2)
  1. LATISSE [Suspect]
     Active Substance: BIMATOPROST
     Indication: Eyelash changes
     Route: 061
     Dates: start: 202408
  2. LATISSE [Suspect]
     Active Substance: BIMATOPROST
     Indication: Hypotrichosis
     Route: 061
     Dates: start: 202505

REACTIONS (1)
  - Madarosis [Not Recovered/Not Resolved]

NARRATIVE: CASE EVENT DATE: 20250501
